FAERS Safety Report 22931469 (Version 2)
Quarter: 2023Q4

REPORT INFORMATION
  Report Type: Spontaneous
  Country: ES (occurrence: ES)
  Receive Date: 20230911
  Receipt Date: 20231005
  Transmission Date: 20240110
  Serious: Yes (Hospitalization, Other)
  Sender: FDA-Public Use
  Company Number: ES-002147023-NVSC2023ES045372

PATIENT
  Age: 64 Year
  Sex: Male
  Weight: 62 kg

DRUGS (19)
  1. BEVACIZUMAB [Suspect]
     Active Substance: BEVACIZUMAB
     Indication: Colorectal cancer metastatic
     Dosage: 265 MG, EVERY 2 WEEKS
     Route: 042
     Dates: start: 20221130, end: 20230222
  2. BEVACIZUMAB [Suspect]
     Active Substance: BEVACIZUMAB
     Dosage: 265 MG, EVERY 2 WEEKS
     Route: 042
     Dates: start: 20230315
  3. IRINOTECAN HYDROCHLORIDE [Suspect]
     Active Substance: IRINOTECAN HYDROCHLORIDE
     Indication: Colorectal cancer metastatic
     Dosage: 286.92 MG, Q2W
     Route: 042
     Dates: start: 20221130, end: 20230222
  4. IRINOTECAN HYDROCHLORIDE [Suspect]
     Active Substance: IRINOTECAN HYDROCHLORIDE
     Dosage: 3825.6 MG, Q2W
     Route: 042
     Dates: start: 20230315
  5. LEUCOVORIN CALCIUM [Suspect]
     Active Substance: LEUCOVORIN CALCIUM
     Indication: Colorectal cancer metastatic
     Dosage: 637.6 MG, Q2W
     Route: 042
     Dates: start: 20221130, end: 20230222
  6. LEUCOVORIN CALCIUM [Suspect]
     Active Substance: LEUCOVORIN CALCIUM
     Dosage: 637.6 MG, Q2W
     Route: 042
     Dates: start: 20230315
  7. FLUOROURACIL [Suspect]
     Active Substance: FLUOROURACIL
     Indication: Colorectal cancer metastatic
     Dosage: 3825.6 MG, Q2W
     Route: 042
     Dates: start: 20221130, end: 20230222
  8. FLUOROURACIL [Suspect]
     Active Substance: FLUOROURACIL
     Dosage: 637.6 MG, Q2W
     Route: 042
     Dates: start: 20221130, end: 20230222
  9. FLUOROURACIL [Suspect]
     Active Substance: FLUOROURACIL
     Dosage: 3825.6 MG, Q2W
     Route: 042
     Dates: start: 20230315
  10. FLUOROURACIL [Suspect]
     Active Substance: FLUOROURACIL
     Dosage: 637.6 MG, Q2W
     Route: 042
     Dates: start: 20230315
  11. ACETAMINOPHEN [Concomitant]
     Active Substance: ACETAMINOPHEN
     Indication: General physical condition
     Dosage: UNK
     Route: 065
     Dates: end: 20230226
  12. LORAZEPAM [Concomitant]
     Active Substance: LORAZEPAM
     Indication: General physical condition
     Dosage: UNK
     Route: 065
     Dates: end: 20230226
  13. ENALAPRIL [Concomitant]
     Active Substance: ENALAPRIL
     Indication: General physical condition
     Dosage: UNK
     Route: 065
     Dates: end: 20230226
  14. TRAMADOL [Concomitant]
     Active Substance: TRAMADOL\TRAMADOL HYDROCHLORIDE
     Indication: General physical condition
     Dosage: UNK
     Route: 065
     Dates: end: 20230226
  15. METAMIZOLE [Concomitant]
     Active Substance: METAMIZOLE
     Indication: General physical condition
     Dosage: UNK
     Route: 065
     Dates: end: 20230226
  16. TIZANIDINE [Concomitant]
     Active Substance: TIZANIDINE
     Indication: Back pain
     Dosage: UNK
     Route: 065
     Dates: start: 20230221, end: 20230226
  17. TRAZODONE HYDROCHLORIDE [Concomitant]
     Active Substance: TRAZODONE HYDROCHLORIDE
     Indication: General physical condition
     Dosage: UNK
     Route: 065
     Dates: end: 20230226
  18. HEPARIN [Concomitant]
     Active Substance: HEPARIN SODIUM
     Indication: Haemorrhoids
     Dosage: UNK
     Route: 065
     Dates: end: 20230226
  19. DEXKETOPROFEN TROMETAMOL [Concomitant]
     Active Substance: DEXKETOPROFEN TROMETAMOL
     Indication: General physical condition
     Dosage: UNK
     Route: 065
     Dates: end: 20230226

REACTIONS (2)
  - Incarcerated inguinal hernia [Recovering/Resolving]
  - Intestinal obstruction [Unknown]

NARRATIVE: CASE EVENT DATE: 20230226
